FAERS Safety Report 6749351-6 (Version None)
Quarter: 2010Q2

REPORT INFORMATION
  Report Type: 
  Country: None (occurrence: None)
  Receive Date: 20100601
  Receipt Date: 20100517
  Transmission Date: 20101027
  Serious: Yes (Congenital Anomaly)
  Sender: FDA-Public Use
  Company Number: US-SANOFI-AVENTIS-2010SA028772

PATIENT
  Sex: Female

DRUGS (2)
  1. LOVENOX [Suspect]
     Route: 064
  2. LOVENOX [Suspect]
     Route: 063

REACTIONS (10)
  - ANGER [None]
  - ASTHMA [None]
  - ATTENTION DEFICIT/HYPERACTIVITY DISORDER [None]
  - CATARACT CONGENITAL [None]
  - DRUG EXPOSURE DURING PREGNANCY [None]
  - DRUG EXPOSURE VIA BREAST MILK [None]
  - LEARNING DISORDER [None]
  - MULTIPLE ALLERGIES [None]
  - STRIDOR [None]
  - TRACHEOMALACIA [None]
